FAERS Safety Report 8159778-6 (Version None)
Quarter: 2012Q1

REPORT INFORMATION
  Report Type: 
  Country: None (occurrence: None)
  Receive Date: 20120223
  Receipt Date: 20120214
  Transmission Date: 20120608
  Serious: Yes (Other)
  Sender: FDA-Public Use
  Company Number: US-ACTELION-A-NJ2011-58236

PATIENT

DRUGS (20)
  1. AMARYL [Concomitant]
  2. VITAMIN D [Concomitant]
  3. DIOVAN [Concomitant]
  4. SPIRIVA [Concomitant]
  5. TRACLEER [Suspect]
     Indication: PULMONARY ARTERIAL HYPERTENSION
     Dosage: 125 MG, BID
     Route: 048
     Dates: start: 20090512, end: 20111212
  6. TRACLEER [Suspect]
     Dosage: 62.5 MG, OD
     Route: 048
     Dates: start: 20120110
  7. REVATIO [Concomitant]
  8. ATENOLOL [Concomitant]
  9. ADVAIR DISKUS 100/50 [Concomitant]
  10. PRILOSEC [Concomitant]
  11. AMBIEN [Concomitant]
  12. ZETIA [Concomitant]
  13. ACCUNEB [Concomitant]
  14. LIPITOR [Concomitant]
  15. CALCIUM CHANNEL BLOCKERS [Concomitant]
  16. ANASTROZOLE [Concomitant]
  17. JANUVIA [Concomitant]
  18. PLAVIX [Concomitant]
  19. NIFEDIPINE [Concomitant]
  20. SPIRONOLACTONE [Concomitant]

REACTIONS (5)
  - ASPARTATE AMINOTRANSFERASE INCREASED [None]
  - FEELING ABNORMAL [None]
  - BREAST CANCER [None]
  - ALANINE AMINOTRANSFERASE INCREASED [None]
  - LIVER FUNCTION TEST ABNORMAL [None]
